FAERS Safety Report 4845683-7 (Version None)
Quarter: 2005Q4

REPORT INFORMATION
  Report Type: 
  Country: None (occurrence: None)
  Receive Date: 20051206
  Receipt Date: 20051129
  Transmission Date: 20060501
  Serious: Yes (Hospitalization)
  Sender: FDA-Public Use
  Company Number: LV-BOEHRINGER INGELHEIM PHARMACEUTICALS, INC.-2005-AP-00447AP

PATIENT
  Age: 84 Year

DRUGS (2)
  1. MOVALIS [Suspect]
     Indication: POLYARTHRITIS
     Route: 048
     Dates: start: 20051122, end: 20051124
  2. VEROSPIRON [Concomitant]
     Indication: HYPERTENSION

REACTIONS (3)
  - EYELID IRRITATION [None]
  - FACE OEDEMA [None]
  - SKIN IRRITATION [None]
